FAERS Safety Report 23421695 (Version 1)
Quarter: 2024Q1

REPORT INFORMATION
  Report Type: Spontaneous
  Country: US (occurrence: US)
  Receive Date: 20240119
  Receipt Date: 20240119
  Transmission Date: 20240409
  Serious: No
  Sender: FDA-Public Use
  Company Number: US-009507513-2401USA008177

PATIENT
  Sex: Male

DRUGS (30)
  1. KEYTRUDA [Suspect]
     Active Substance: PEMBROLIZUMAB
     Indication: Renal cell carcinoma
     Route: 042
     Dates: start: 20231101
  2. LENVATINIB MESYLATE [Suspect]
     Active Substance: LENVATINIB MESYLATE
     Indication: Renal cell carcinoma
  3. VITAMIN A [Concomitant]
     Active Substance: VITAMIN A
  4. VITAMIN C [Concomitant]
     Active Substance: ASCORBIC ACID
  5. CALCIUM [Concomitant]
     Active Substance: CALCIUM
  6. VITAMIN D3 [Concomitant]
     Active Substance: CHOLECALCIFEROL
  7. VITAMIN E\VITAMINS [Concomitant]
     Active Substance: .ALPHA.-TOCOPHEROL\VITAMINS
  8. THIAMINE [Concomitant]
     Active Substance: THIAMINE
  9. RIBOFLAVIN [Concomitant]
     Active Substance: RIBOFLAVIN
  10. NIACIN [Concomitant]
     Active Substance: NIACIN
  11. PYRIDOXINE [Concomitant]
     Active Substance: PYRIDOXINE
  12. FOLATE SODIUM [Concomitant]
     Active Substance: FOLATE SODIUM
  13. VITAMIN B12 [Concomitant]
     Active Substance: CYANOCOBALAMIN
  14. BIOTIN [Concomitant]
     Active Substance: BIOTIN
  15. IODINE;PANTOTHENIC ACID [Concomitant]
  16. MAGNESIUM [Concomitant]
     Active Substance: MAGNESIUM
  17. ZINC [Concomitant]
     Active Substance: PYRITHIONE ZINC\ZINC\ZINC CHLORIDE
  18. PLANTAGO AFRA SEED [Concomitant]
     Active Substance: PLANTAGO AFRA SEED
  19. COPPER [Concomitant]
     Active Substance: COPPER
  20. MANGANESE [Concomitant]
     Active Substance: MANGANESE CHLORIDE
  21. CHROMIUM [Concomitant]
     Active Substance: CHROMIC CHLORIDE\CHROMIUM
  22. MOLYBDENUM [Concomitant]
     Active Substance: MOLYBDENUM
  23. POTASSIUM [Concomitant]
     Active Substance: POTASSIUM
  24. ALPHA LIPOIC ACID [Concomitant]
     Active Substance: .ALPHA.-LIPOIC ACID
  25. AMERICAN GINSENG [Concomitant]
     Active Substance: AMERICAN GINSENG
  26. GREEN TEA EXTRACT [CAMELLIA SINENSIS] [Concomitant]
  27. INOSITOL [Concomitant]
     Active Substance: INOSITOL
  28. VANADIUM [Concomitant]
     Active Substance: VANADIUM
  29. BIO-ANTIOXIDANT [Concomitant]
  30. DIETARY SUPPLEMENT\UBIDECARENONE [Concomitant]
     Active Substance: DIETARY SUPPLEMENT\UBIDECARENONE

REACTIONS (2)
  - Dyspnoea [Not Recovered/Not Resolved]
  - Feeling abnormal [Not Recovered/Not Resolved]
